FAERS Safety Report 24005768 (Version 3)
Quarter: 2025Q1

REPORT INFORMATION
  Report Type: Spontaneous
  Country: US (occurrence: US)
  Receive Date: 20240624
  Receipt Date: 20250103
  Transmission Date: 20250409
  Serious: Yes (Other)
  Sender: SANOFI AVENTIS
  Company Number: US-SA-SAC20240614001256

PATIENT
  Sex: Female
  Weight: 113.39 kg

DRUGS (8)
  1. DUPIXENT [Suspect]
     Active Substance: DUPILUMAB
     Indication: Dermatitis atopic
     Dosage: 300 MG, QOW
     Route: 058
  2. BROMFENAC SODIUM [Concomitant]
     Active Substance: BROMFENAC SODIUM
  3. MOUNJARO [Concomitant]
     Active Substance: TIRZEPATIDE
  4. GABAPENTIN [Concomitant]
     Active Substance: GABAPENTIN
  5. METFORMIN [Concomitant]
     Active Substance: METFORMIN HYDROCHLORIDE
  6. ATORVASTATIN CALCIUM [Concomitant]
     Active Substance: ATORVASTATIN CALCIUM
  7. ALEVE [Concomitant]
     Active Substance: NAPROXEN SODIUM
  8. VTAMA [Concomitant]
     Active Substance: TAPINAROF

REACTIONS (2)
  - Retinal oedema [Not Recovered/Not Resolved]
  - Poor quality product administered [Unknown]
